FAERS Safety Report 6517150-6 (Version None)
Quarter: 2009Q4

REPORT INFORMATION
  Report Type: 
  Country: None (occurrence: None)
  Receive Date: 20091223
  Receipt Date: 20091216
  Transmission Date: 20100525
  Serious: Yes (Other)
  Sender: FDA-Public Use
  Company Number: US-ABBOTT-09P-163-0614651-00

PATIENT
  Sex: Female
  Weight: 73.094 kg

DRUGS (7)
  1. HUMIRA [Suspect]
     Indication: RHEUMATOID ARTHRITIS
     Dates: start: 20090801
  2. HUMIRA [Suspect]
     Indication: ANKYLOSING SPONDYLITIS
  3. LYRICA [Concomitant]
     Indication: NEUROPATHY PERIPHERAL
  4. NEXIUM [Concomitant]
     Indication: GASTROOESOPHAGEAL REFLUX DISEASE
  5. LIPITOR [Concomitant]
     Indication: BLOOD CHOLESTEROL INCREASED
  6. ZOLOFT [Concomitant]
     Indication: DEPRESSION
  7. RESTASIS [Concomitant]
     Indication: SJOGREN'S SYNDROME

REACTIONS (3)
  - FALL [None]
  - PAIN [None]
  - TENDON RUPTURE [None]
